FAERS Safety Report 13410713 (Version 2)
Quarter: 2018Q3

REPORT INFORMATION
  Report Type: Spontaneous
  Country: PL (occurrence: PL)
  Receive Date: 20170406
  Receipt Date: 20180910
  Transmission Date: 20181010
  Serious: Yes (Other)
  Sender: FDA-Public Use
  Company Number: PL-MUNDIPHARMA DS AND PHARMACOVIGILANCE-USA-2017-0137582

PATIENT
  Age: 67 Year
  Sex: Male

DRUGS (18)
  1. MORPHINE SULFATE (SIMILAR TO NDA 19?516) [Concomitant]
     Active Substance: MORPHINE SULFATE
     Dosage: 5 MG, Q4H
     Route: 048
     Dates: start: 20120621
  2. CODEINE [Concomitant]
     Active Substance: CODEINE
     Indication: ANALGESIC THERAPY
     Route: 048
  3. METAMIZOLE [Concomitant]
     Active Substance: METAMIZOLE
     Indication: ANALGESIC THERAPY
     Route: 048
  4. VALPROIC ACID. [Concomitant]
     Active Substance: VALPROIC ACID
     Indication: EPILEPSY
     Route: 048
  5. PAPAVERINE [Concomitant]
     Active Substance: PAPAVERINE
     Indication: ANALGESIC THERAPY
     Route: 048
  6. MORPHINE SULFATE (SIMILAR TO NDA 19?516) [Concomitant]
     Active Substance: MORPHINE SULFATE
     Indication: PAIN
     Dosage: 10 MG, Q4H
     Route: 058
     Dates: start: 20120817
  7. TRAMADOL                           /00599202/ [Concomitant]
     Active Substance: TRAMADOL
     Indication: PAIN
     Dosage: UP TO 400 MG, DAILY
     Route: 048
  8. TRAMADOL                           /00599202/ [Concomitant]
     Active Substance: TRAMADOL
     Dosage: 50?70 MG, UNK
     Route: 048
  9. OXYCODONE HCL CR TABLETS (SIMILAR TO NDA 22?272) [Suspect]
     Active Substance: OXYCODONE HYDROCHLORIDE
     Indication: PAIN
     Dosage: 10 MG, DAILY
     Route: 048
     Dates: start: 20120807
  10. TRAMADOL                           /00599202/ [Concomitant]
     Active Substance: TRAMADOL
     Dosage: 50 MG, Q6? 8H
     Route: 048
     Dates: start: 20120606
  11. VALPROATE [Concomitant]
     Active Substance: VALPROIC ACID
     Indication: EPILEPSY
     Dosage: (2 X 500 MG) 1000 MG, UNK
     Route: 065
  12. DEXAMETHASONE. [Concomitant]
     Active Substance: DEXAMETHASONE
     Indication: PRODUCT USED FOR UNKNOWN INDICATION
     Route: 058
  13. INSULIN [Concomitant]
     Active Substance: INSULIN NOS
     Indication: TYPE 2 DIABETES MELLITUS
     Route: 048
  14. AMOXICILLIN/CLAVULANIC ACID [Concomitant]
     Active Substance: AMOXICILLIN\CLAVULANIC ACID
     Indication: PRODUCT USED FOR UNKNOWN INDICATION
     Route: 048
  15. CIPROFLOXACIN. [Concomitant]
     Active Substance: CIPROFLOXACIN
     Indication: MORGANELLA INFECTION
     Route: 048
  16. TRIMETHOPRIM. [Concomitant]
     Active Substance: TRIMETHOPRIM
     Indication: MORGANELLA INFECTION
     Dosage: 240 MG/5ML
     Route: 048
     Dates: end: 20120621
  17. MORPHINE SULFATE (SIMILAR TO NDA 19?516) [Concomitant]
     Active Substance: MORPHINE SULFATE
     Dosage: UNK UNK, Q4H
     Route: 048
  18. MORPHINE SULFATE (SIMILAR TO NDA 19?516) [Concomitant]
     Active Substance: MORPHINE SULFATE
     Dosage: 0.5 ML, PRN
     Route: 048
     Dates: start: 20120615

REACTIONS (3)
  - Apathy [Unknown]
  - Pyrexia [Unknown]
  - Somnolence [Unknown]
